FAERS Safety Report 11846941 (Version 1)
Quarter: 2015Q4

REPORT INFORMATION
  Report Type: Spontaneous
  Country: US (occurrence: US)
  Receive Date: 20151217
  Receipt Date: 20151217
  Transmission Date: 20160305
  Serious: No
  Sender: FDA-Public Use
  Company Number: US-ROCHE-1528964

PATIENT
  Age: 71 Year
  Sex: Male

DRUGS (2)
  1. TAMIFLU [Suspect]
     Active Substance: OSELTAMIVIR PHOSPHATE
     Indication: INFLUENZA
     Dosage: 05/JAN/2015 ONLY TOOK ONE DOSE
     Route: 065
  2. CALAMINE LOTION [Concomitant]
     Active Substance: CALAMINE LOTION
     Indication: RASH
     Route: 065
     Dates: start: 201501, end: 201501

REACTIONS (6)
  - Nausea [Recovered/Resolved]
  - Urticaria [Recovered/Resolved]
  - Dyspnoea [Recovered/Resolved]
  - Vomiting [Recovered/Resolved]
  - Hallucination [Recovered/Resolved]
  - Rash [Recovered/Resolved]

NARRATIVE: CASE EVENT DATE: 201501
